FAERS Safety Report 9039517 (Version 1)
Quarter: 2013Q1

REPORT INFORMATION
  Report Type: Spontaneous
  Country: IT (occurrence: IT)
  Receive Date: 20130129
  Receipt Date: 20130129
  Transmission Date: 20140127
  Serious: Yes (Hospitalization)
  Sender: FDA-Public Use
  Company Number: PHHY2013IT007516

PATIENT
  Sex: Female

DRUGS (2)
  1. ATENOLOL [Suspect]
  2. HYDROCHLOROTHIAZIDE [Suspect]

REACTIONS (4)
  - Malaise [Recovering/Resolving]
  - Nodal rhythm [Recovering/Resolving]
  - Diarrhoea [Recovering/Resolving]
  - Hypotension [Recovering/Resolving]
